FAERS Safety Report 4630152-X (Version None)
Quarter: 2005Q2

REPORT INFORMATION
  Report Type: 
  Country: None (occurrence: None)
  Receive Date: 20050406
  Receipt Date: 20050324
  Transmission Date: 20051028
  Serious: Yes (Other)
  Sender: FDA-Public Use
  Company Number: HQWYE349824MAR05

PATIENT
  Sex: Male

DRUGS (1)
  1. CORDARONE [Suspect]
     Dates: start: 19991209, end: 20000501

REACTIONS (7)
  - ARTHRALGIA [None]
  - CHEST WALL PAIN [None]
  - NEUROPATHY [None]
  - PAIN [None]
  - PHOTOSENSITIVITY REACTION [None]
  - PRURITUS [None]
  - RASH SCALY [None]
